FAERS Safety Report 9224794 (Version 1)
Quarter: 2013Q1

REPORT INFORMATION
  Report Type: Spontaneous
  Country: US (occurrence: None)
  Receive Date: 20120912
  Receipt Date: 20120912
  Transmission Date: 20140127
  Serious: No
  Sender: FDA-Public Use
  Company Number: 2012SP026403

PATIENT
  Age: 59 Year
  Sex: Female

DRUGS (15)
  1. VICTRELIS [Suspect]
     Indication: HEPATITIS C
     Route: 048
     Dates: start: 20120501
  2. RIBAVIRIN [Suspect]
     Indication: PRODUCT USED FOR UNKNOWN INDICATION
  3. PEGASYS [Suspect]
  4. LOTREL (CON.) [Concomitant]
  5. NAPROXEN (CON.) [Concomitant]
  6. PLAVIX (CON.) [Concomitant]
  7. PEKTURNA (CON.) [Concomitant]
  8. NITROGLYCERIN (CON.) [Concomitant]
  9. ACTOS (CON.) [Concomitant]
  10. AMITRIPTYLINE (CON.) [Concomitant]
  11. OXYBUTYNIN (CON.) [Concomitant]
  12. JANUVIA (CON.) [Concomitant]
  13. ASPERDRINK (CON.) [Concomitant]
  14. PANTOPRAZOLE (CON.) [Concomitant]
  15. METROPROLOL (CON.) [Concomitant]

REACTIONS (3)
  - Sleep disorder [None]
  - Amnesia [None]
  - Hallucination [None]
